FAERS Safety Report 7444870-1 (Version None)
Quarter: 2011Q2

REPORT INFORMATION
  Report Type: 
  Country: None (occurrence: None)
  Receive Date: 20110429
  Receipt Date: 20110418
  Transmission Date: 20111010
  Serious: Yes (Other)
  Sender: FDA-Public Use
  Company Number: PHEH2006US14747

PATIENT
  Sex: Female

DRUGS (1)
  1. ZOMETA [Suspect]

REACTIONS (8)
  - BREAST CANCER METASTATIC [None]
  - OSTEONECROSIS OF JAW [None]
  - ANXIETY [None]
  - PAIN [None]
  - HYPERTENSION [None]
  - DECREASED INTEREST [None]
  - HYPERLIPIDAEMIA [None]
  - GENERAL PHYSICAL HEALTH DETERIORATION [None]
